FAERS Safety Report 7948309 (Version 5)
Quarter: 2013Q1

REPORT INFORMATION
  Report Type: Spontaneous
  Country: US (occurrence: US)
  Receive Date: 20110517
  Receipt Date: 20130107
  Transmission Date: 20140127
  Serious: Yes (Hospitalization, Other)
  Sender: FDA-Public Use
  Company Number: US-BAYER-2010-006131

PATIENT
  Age: 30 Year
  Sex: Female
  Weight: 100 kg

DRUGS (22)
  1. YASMIN [Suspect]
     Indication: CONTRACEPTION
     Dosage: UNK
     Dates: start: 2006, end: 2007
  2. YASMIN [Suspect]
     Indication: MENSTRUATION IRREGULAR
  3. ALBUTEROL [Concomitant]
     Dosage: UNK
     Dates: start: 1992
  4. PREDNISONE [Concomitant]
     Dosage: UNK
     Dates: start: 1992
  5. ZYRTEC [Concomitant]
     Dosage: UNK
     Dates: start: 1996
  6. LISINOPRIL [Concomitant]
     Dosage: UNK
     Dates: start: 2007
  7. ASCORBIC ACID [Concomitant]
  8. ADVAIR DISKUS [Concomitant]
     Dosage: UNK UNK, BID
  9. SINGULAIR [Concomitant]
     Dosage: 10 MG, QD
     Route: 048
  10. SPORANOX [Concomitant]
     Indication: SINUSITIS
     Dosage: ^100 MG, QD
     Route: 048
  11. MYCOSTATIN [NYSTATIN] [Concomitant]
     Indication: RASH
     Dosage: UNK UNK, BID
     Route: 061
  12. METFORMIN [Concomitant]
     Indication: BLOOD GLUCOSE ABNORMAL
     Dosage: 500 MG, QD
  13. PERCOCET [Concomitant]
     Indication: PAIN
     Dosage: UNK UNK, PRN
     Route: 048
  14. NEXIUM [Concomitant]
     Dosage: 40 MG, QD
     Route: 048
  15. CEFTIN [Concomitant]
     Indication: ANTIBIOTIC THERAPY
     Dosage: 200 MG, BID
  16. DOXYCYCLINE HYCLATE [Concomitant]
     Dosage: 100 MG, BID
     Route: 048
     Dates: start: 20070305
  17. BACTROBAN [Concomitant]
     Dosage: 22 MG, TUBE MIXED IN 1 LITER NS (INTERPRETED AS NORMAL SALINE) BID, IRRIGATION
     Dates: start: 20070305
  18. LEVAQUIN [Concomitant]
     Dosage: 500 MG, QD [TIMES] 4 WEEKS
     Route: 048
     Dates: start: 20070305
  19. MUPIROCIN [Concomitant]
     Dosage: 22 GM
     Route: 061
     Dates: start: 20070305
  20. ZYFLO [Concomitant]
     Dosage: 600 MG, QID
     Route: 048
     Dates: start: 20070305
  21. FOSAMAX PLUS [Concomitant]
     Dosage: 70 MG-2,800 UNIT TAB (TABLET)
     Dates: start: 20070305
  22. SOLU-MEDROL [Concomitant]

REACTIONS (7)
  - Cerebrovascular accident [None]
  - Cerebral venous thrombosis [None]
  - Pain [None]
  - Headache [None]
  - Muscular weakness [None]
  - Confusional state [None]
  - Amnesia [None]
